FAERS Safety Report 17788404 (Version 2)
Quarter: 2020Q2

REPORT INFORMATION
  Report Type: Spontaneous
  Country: BA (occurrence: BA)
  Receive Date: 20200514
  Receipt Date: 20200601
  Transmission Date: 20200714
  Serious: Yes (Death, Hospitalization)
  Sender: FDA-Public Use
  Company Number: BA-JNJFOC-20200515634

PATIENT
  Age: 76 Year
  Sex: Female

DRUGS (8)
  1. ASENTRA [Interacting]
     Active Substance: SERTRALINE HYDROCHLORIDE
     Indication: ORGANIC BRAIN SYNDROME
     Route: 065
     Dates: start: 20200427
  2. ASENTRA [Interacting]
     Active Substance: SERTRALINE HYDROCHLORIDE
     Route: 065
     Dates: start: 20200428
  3. HALOPERIDOL. [Suspect]
     Active Substance: HALOPERIDOL
     Indication: ORGANIC BRAIN SYNDROME
     Route: 030
     Dates: start: 20200426
  4. DIAZEPAM. [Interacting]
     Active Substance: DIAZEPAM
     Indication: PRODUCT USED FOR UNKNOWN INDICATION
     Route: 065
     Dates: start: 20200426
  5. RISPERIDONE. [Interacting]
     Active Substance: RISPERIDONE
     Route: 065
     Dates: start: 20200428
  6. LEXAURIN [Concomitant]
     Active Substance: BROMAZEPAM
     Route: 065
  7. SEROXAT [Concomitant]
     Active Substance: PAROXETINE HYDROCHLORIDE
     Route: 065
  8. RISPERIDONE. [Interacting]
     Active Substance: RISPERIDONE
     Indication: PRODUCT USED FOR UNKNOWN INDICATION
     Route: 065
     Dates: start: 20200427

REACTIONS (5)
  - Drug interaction [Fatal]
  - Psychotic disorder [Not Recovered/Not Resolved]
  - Depressed level of consciousness [Not Recovered/Not Resolved]
  - Restlessness [Not Recovered/Not Resolved]
  - Aggression [Not Recovered/Not Resolved]

NARRATIVE: CASE EVENT DATE: 20200429
